FAERS Safety Report 6479541-1 (Version None)
Quarter: 2009Q4

REPORT INFORMATION
  Report Type: 
  Country: None (occurrence: None)
  Receive Date: 20091208
  Receipt Date: 20091126
  Transmission Date: 20100525
  Serious: Yes (Disabling, Other)
  Sender: FDA-Public Use
  Company Number: NL-ELI_LILLY_AND_COMPANY-NL200911007138

PATIENT
  Sex: Female

DRUGS (3)
  1. BYETTA [Suspect]
     Indication: TYPE 2 DIABETES MELLITUS
     Dosage: 5 UG, UNKNOWN
     Route: 065
     Dates: start: 20091101
  2. LIPITOR [Concomitant]
     Dosage: 10 MG, UNKNOWN
     Route: 065
  3. METFORMIN HCL [Concomitant]
     Dosage: 850 MG, 3/D
     Route: 065

REACTIONS (5)
  - ABASIA [None]
  - DIARRHOEA [None]
  - MYALGIA [None]
  - NAUSEA [None]
  - PERIPHERAL VASCULAR DISORDER [None]
